FAERS Safety Report 14505421 (Version 1)
Quarter: 2018Q1

REPORT INFORMATION
  Report Type: Spontaneous
  Country: GB (occurrence: GB)
  Receive Date: 20180208
  Receipt Date: 20180208
  Transmission Date: 20180509
  Serious: Yes (Other)
  Sender: FDA-Public Use
  Company Number: GB-AUROBINDO-AUR-APL-2018-005091

PATIENT
  Sex: Male

DRUGS (1)
  1. RIBAVIRIN TABLET [Suspect]
     Active Substance: RIBAVIRIN
     Indication: HEPATITIS C
     Dosage: THE DRUG DURATION WAS 16 WEEKS
     Route: 048

REACTIONS (1)
  - Hepatitis C [Unknown]
